FAERS Safety Report 11338148 (Version 1)
Quarter: 2015Q3

REPORT INFORMATION
  Report Type: Spontaneous
  Country: US (occurrence: US)
  Receive Date: 20150803
  Receipt Date: 20150803
  Transmission Date: 20151125
  Serious: No
  Sender: FDA-Public Use
  Company Number: US-ELI_LILLY_AND_COMPANY-US201007001419

PATIENT
  Age: 63 Year
  Sex: Male

DRUGS (10)
  1. ATENOLOL. [Concomitant]
     Active Substance: ATENOLOL
     Dosage: 37.5 MG, DAILY (1/D)
  2. SIMVASTATIN. [Concomitant]
     Active Substance: SIMVASTATIN
     Dosage: 10 MG, DAILY (1/D)
  3. IBUPROFEN. [Concomitant]
     Active Substance: IBUPROFEN
     Dosage: UNK, AS NEEDED
  4. GLIPIZIDE. [Concomitant]
     Active Substance: GLIPIZIDE
     Dosage: 5 MG, 2/D
  5. ZYPREXA [Suspect]
     Active Substance: OLANZAPINE
     Indication: SCHIZOPHRENIA
     Dosage: 20 MG, DAILY (1/D)
  6. MULTIVITAMIN /00831701/ [Concomitant]
     Active Substance: VITAMINS
     Dosage: UNK, DAILY (1/D)
  7. INSULIN [Concomitant]
     Active Substance: INSULIN NOS
     Dosage: UNK, 4/D
     Route: 058
  8. METRONIDAZOLE. [Concomitant]
     Active Substance: METRONIDAZOLE
     Dosage: UNK, 2/D
     Route: 061
  9. MICONAZOLE. [Concomitant]
     Active Substance: MICONAZOLE NITRATE
     Dosage: UNK, AS NEEDED
  10. ZINC [Concomitant]
     Active Substance: ZINC\ZINC CHLORIDE
     Dosage: UNK, DAILY (1/D)

REACTIONS (2)
  - Constipation [Unknown]
  - Diabetes mellitus [Unknown]
